FAERS Safety Report 22314087 (Version 1)
Quarter: 2023Q2

REPORT INFORMATION
  Report Type: Spontaneous
  Country: GB (occurrence: GB)
  Receive Date: 20230512
  Receipt Date: 20230512
  Transmission Date: 20230721
  Serious: Yes (Other)
  Sender: FDA-Public Use
  Company Number: GB-MHRA-MED-202305010008237900-JMCBK

PATIENT
  Sex: Female

DRUGS (5)
  1. APIXABAN [Suspect]
     Active Substance: APIXABAN
     Indication: Computerised tomogram
     Dosage: 100MG; \
     Route: 065
     Dates: start: 20230429
  2. APIXABAN [Suspect]
     Active Substance: APIXABAN
     Indication: Inflammation
  3. APIXABAN [Suspect]
     Active Substance: APIXABAN
     Indication: Pulmonary embolism
  4. DOXYCYCLINE [Suspect]
     Active Substance: DOXYCYCLINE
     Indication: Inflammation
     Dosage: 100MG;
     Route: 065
     Dates: start: 20230429
  5. DOXYCYCLINE [Suspect]
     Active Substance: DOXYCYCLINE
     Indication: Pulmonary embolism

REACTIONS (9)
  - Dissociation [Not Recovered/Not Resolved]
  - Dizziness postural [Not Recovered/Not Resolved]
  - Vision blurred [Not Recovered/Not Resolved]
  - Lip swelling [Not Recovered/Not Resolved]
  - Dizziness [Recovering/Resolving]
  - Swollen tongue [Recovering/Resolving]
  - Circumoral swelling [Recovering/Resolving]
  - Euphoric mood [Recovering/Resolving]
  - Nausea [Recovering/Resolving]
